FAERS Safety Report 5191012-1 (Version None)
Quarter: 2006Q4

REPORT INFORMATION
  Report Type: 
  Country: None (occurrence: None)
  Receive Date: 20061218
  Receipt Date: 20061207
  Transmission Date: 20070319
  Serious: Yes (Hospitalization)
  Sender: FDA-Public Use
  Company Number: GXKR2006GB08027

PATIENT
  Age: 69 Year
  Weight: 101 kg

DRUGS (13)
  1. TRIMETHOPRIM [Suspect]
     Indication: URINARY TRACT INFECTION
     Dosage: 200 MG, ORAL
     Route: 048
     Dates: start: 20061030, end: 20061031
  2. ALLOPURINOL [Concomitant]
  3. ATORVASTATIN CALCIUM [Concomitant]
  4. BECLOMETHASONE DIPROPIONATE [Concomitant]
  5. CALCICHEW D3 (CALCIUM CARBONATE, COLECALCIFEROL) [Concomitant]
  6. FLIXONASE (FLUTICASONE PROPIONATE) [Concomitant]
  7. OMEPRAZOLE [Concomitant]
  8. SALBUTAMOL (SALBUTAMOL) [Concomitant]
  9. SALMETEROL (SALMETEROL) [Concomitant]
  10. SOTALOL HCL [Concomitant]
  11. SPASMONAL (ALVERINE CITRATE) [Concomitant]
  12. WARFARIN SODIUM [Concomitant]
  13. VITAMINS [Concomitant]

REACTIONS (3)
  - CONDITION AGGRAVATED [None]
  - PYELONEPHRITIS [None]
  - SEPSIS [None]
